FAERS Safety Report 5338188-0 (Version None)
Quarter: 2007Q2

REPORT INFORMATION
  Report Type: 
  Country: None (occurrence: None)
  Receive Date: 20070530
  Receipt Date: 20070525
  Transmission Date: 20071010
  Serious: Yes (Hospitalization)
  Sender: FDA-Public Use
  Company Number: GB-BRISTOL-MYERS SQUIBB COMPANY-13764402

PATIENT
  Age: 18 Year
  Sex: Male

DRUGS (3)
  1. CISPLATIN [Suspect]
     Indication: TESTICULAR GERM CELL CANCER
     Route: 041
  2. ETOPOSIDE [Suspect]
     Indication: TESTICULAR GERM CELL CANCER
     Route: 041
  3. BLEOMYCIN [Suspect]
     Indication: TESTICULAR GERM CELL CANCER
     Route: 042

REACTIONS (2)
  - DEEP VEIN THROMBOSIS [None]
  - RENAL FAILURE ACUTE [None]
